FAERS Safety Report 5523735-6 (Version None)
Quarter: 2007Q4

REPORT INFORMATION
  Report Type: 
  Country: None (occurrence: None)
  Receive Date: 20071121
  Receipt Date: 20071112
  Transmission Date: 20080405
  Serious: Yes (Hospitalization)
  Sender: FDA-Public Use
  Company Number: JP-AMGEN-US249548

PATIENT
  Sex: Female
  Weight: 39 kg

DRUGS (17)
  1. ENBREL [Suspect]
     Indication: RHEUMATOID ARTHRITIS
     Route: 058
     Dates: start: 20070825, end: 20070928
  2. ISCOTIN [Suspect]
     Indication: ANTIBIOTIC PROPHYLAXIS
     Route: 048
     Dates: start: 20070804, end: 20070831
  3. ISCOTIN [Suspect]
     Route: 048
     Dates: start: 20070901, end: 20070928
  4. LENDORMIN [Concomitant]
     Route: 048
  5. WASSER V GRAN. [Concomitant]
     Route: 048
  6. TAKEPRON [Concomitant]
     Route: 048
  7. DIOVAN [Concomitant]
     Route: 048
  8. BIOFERMIN [Concomitant]
     Route: 048
  9. CEPHADOL [Concomitant]
     Route: 048
  10. NORVASC [Concomitant]
     Route: 048
  11. ONE-ALPHA [Concomitant]
     Route: 048
  12. ASPIRIN [Concomitant]
     Route: 048
     Dates: end: 20070101
  13. DICLOFENAC SODIUM [Concomitant]
     Dosage: 25 MG, FREQUENCY UNKNOWN
     Route: 065
  14. CYTOTEC [Concomitant]
     Dosage: 100 MG, FREQUENCY UNKNOWN
     Route: 065
  15. FLAVITAN [Concomitant]
     Route: 065
  16. INDOMETHACIN [Concomitant]
     Route: 065
  17. KETOPROFEN [Concomitant]
     Route: 065

REACTIONS (2)
  - DEAFNESS [None]
  - LIVER DISORDER [None]
